FAERS Safety Report 5807584-7 (Version None)
Quarter: 2008Q3

REPORT INFORMATION
  Report Type: 
  Country: None (occurrence: None)
  Receive Date: 20080711
  Receipt Date: 20080708
  Transmission Date: 20090109
  Serious: Yes (Death, Hospitalization)
  Sender: FDA-Public Use
  Company Number: US-BRISTOL-MYERS SQUIBB COMPANY-13916408

PATIENT
  Age: 70 Year
  Sex: Male

DRUGS (4)
  1. CISPLATIN [Suspect]
     Indication: SQUAMOUS CELL CARCINOMA
     Route: 042
     Dates: start: 20070820
  2. PANITUMUMAB [Suspect]
     Indication: SQUAMOUS CELL CARCINOMA
     Route: 042
     Dates: start: 20070820, end: 20070820
  3. DOCETAXEL [Suspect]
     Indication: SQUAMOUS CELL CARCINOMA
     Route: 042
     Dates: start: 20070820
  4. PEGFILGRASTIM [Concomitant]
     Route: 058
     Dates: start: 20070821, end: 20070821

REACTIONS (10)
  - ATRIAL FIBRILLATION [None]
  - DEATH [None]
  - DEHYDRATION [None]
  - ELECTROLYTE IMBALANCE [None]
  - GASTROINTESTINAL HAEMORRHAGE [None]
  - MYOCARDIAL ISCHAEMIA [None]
  - NEUTROPENIC SEPSIS [None]
  - PANCYTOPENIA [None]
  - PNEUMONIA KLEBSIELLA [None]
  - URINARY TRACT INFECTION [None]
